FAERS Safety Report 17593582 (Version 2)
Quarter: 2020Q1

REPORT INFORMATION
  Report Type: Spontaneous
  Country: CN (occurrence: CN)
  Receive Date: 20200327
  Receipt Date: 20200331
  Transmission Date: 20200409
  Serious: Yes (Other)
  Sender: FDA-Public Use
  Company Number: CN-BAYER-2020-049806

PATIENT
  Age: 86 Year
  Sex: Male

DRUGS (3)
  1. TERBUTALINE SULFATE. [Concomitant]
     Active Substance: TERBUTALINE SULFATE
     Indication: ASTHMA
     Dosage: UNK
     Dates: start: 201708
  2. AMBROXOL HYDROCHLORIDE [Concomitant]
     Active Substance: AMBROXOL HYDROCHLORIDE
     Indication: PRODUCTIVE COUGH
     Dosage: UNK
     Dates: start: 201708
  3. AVELOX [Suspect]
     Active Substance: MOXIFLOXACIN HYDROCHLORIDE
     Indication: PNEUMONIA
     Dosage: UNK
     Dates: start: 20170809, end: 20170809

REACTIONS (11)
  - Chills [Recovering/Resolving]
  - Haematemesis [Recovering/Resolving]
  - Blood pressure increased [Recovering/Resolving]
  - Temperature intolerance [Recovering/Resolving]
  - Flushing [Recovering/Resolving]
  - Diarrhoea [Recovering/Resolving]
  - Tremor [Recovering/Resolving]
  - Dyspnoea [Recovering/Resolving]
  - Nausea [Recovering/Resolving]
  - Heart rate increased [Recovering/Resolving]
  - Anal incontinence [Recovering/Resolving]

NARRATIVE: CASE EVENT DATE: 20170809
